FAERS Safety Report 13675866 (Version 1)
Quarter: 2017Q2

REPORT INFORMATION
  Report Type: Spontaneous
  Country: US (occurrence: US)
  Receive Date: 20170620
  Receipt Date: 20170620
  Transmission Date: 20170830
  Serious: Yes (Other)
  Sender: FDA-Public Use
  Company Number: None

PATIENT
  Age: 64 Year
  Sex: Female
  Weight: 81 kg

DRUGS (7)
  1. ZOLOFT [Concomitant]
     Active Substance: SERTRALINE HYDROCHLORIDE
  2. XIIDRA [Suspect]
     Active Substance: LIFITEGRAST
     Indication: DRY EYE
     Dosage: ?          QUANTITY:1 DROP(S);?
     Route: 047
  3. GLUCOSAMINE [Concomitant]
     Active Substance: GLUCOSAMINE
  4. HYDROCHLOROTHIAZIDE AND LISINOPRIL [Concomitant]
     Active Substance: HYDROCHLOROTHIAZIDE\LISINOPRIL
  5. AMLODIPINE [Concomitant]
     Active Substance: AMLODIPINE BESYLATE
  6. BIOTIN [Concomitant]
     Active Substance: BIOTIN
  7. MSM [Concomitant]
     Active Substance: DIMETHYL SULFONE

REACTIONS (3)
  - Vision blurred [None]
  - Oral mucosal blistering [None]
  - Headache [None]

NARRATIVE: CASE EVENT DATE: 20170610
